FAERS Safety Report 12850554 (Version 1)
Quarter: 2016Q4

REPORT INFORMATION
  Report Type: Spontaneous
  Country: US (occurrence: US)
  Receive Date: 20161014
  Receipt Date: 20161014
  Transmission Date: 20170207
  Serious: No
  Sender: FDA-Public Use
  Company Number: US-VISTAPHARM, INC.-1058370

PATIENT
  Sex: Female

DRUGS (1)
  1. PHENYTOIN. [Suspect]
     Active Substance: PHENYTOIN

REACTIONS (3)
  - Loose tooth [None]
  - Tooth disorder [None]
  - Gingivitis [Unknown]
